FAERS Safety Report 5672447-7 (Version None)
Quarter: 2008Q1

REPORT INFORMATION
  Report Type: 
  Country: None (occurrence: None)
  Receive Date: 20080318
  Receipt Date: 20080318
  Transmission Date: 20080703
  Serious: Yes (Life-Threatening)
  Sender: FDA-Public Use
  Company Number: None

PATIENT
  Age: 39 Year
  Sex: Female
  Weight: 53.0709 kg

DRUGS (1)
  1. CHANTIX [Suspect]
     Indication: SMOKING CESSATION THERAPY
     Dosage: 1 MG  2 X DAY  PO
     Route: 048
     Dates: start: 20080229, end: 20080313

REACTIONS (10)
  - ABNORMAL BEHAVIOUR [None]
  - AMNESIA [None]
  - ANURIA [None]
  - CRYING [None]
  - DEPRESSION [None]
  - MOTOR DYSFUNCTION [None]
  - NIGHTMARE [None]
  - RENAL PAIN [None]
  - SLEEP DISORDER [None]
  - SUICIDAL IDEATION [None]
